FAERS Safety Report 9295721 (Version 7)
Quarter: 2019Q1

REPORT INFORMATION
  Report Type: Spontaneous
  Country: FR (occurrence: FR)
  Receive Date: 20130517
  Receipt Date: 20190116
  Transmission Date: 20190418
  Serious: Yes (Other)
  Sender: FDA-Public Use
  Company Number: FR-PFIZER INC-2013141187

PATIENT
  Age: 15 Year
  Sex: Female
  Weight: 69.57 kg

DRUGS (4)
  1. IBUPROFEN. [Suspect]
     Active Substance: IBUPROFEN
     Dosage: 2 G, UNK
  2. PARACETAMOL [Suspect]
     Active Substance: ACETAMINOPHEN
     Dosage: 8 G, OR 115MG/KG
  3. NAPROXEN. [Suspect]
     Active Substance: NAPROXEN
     Dosage: 4.4 G, UNK
  4. PSEUDOEPHEDRINE. [Suspect]
     Active Substance: PSEUDOEPHEDRINE HYDROCHLORIDE
     Dosage: 300 MG, UNK

REACTIONS (2)
  - Acute kidney injury [Recovered/Resolved]
  - Intentional overdose [Unknown]
